FAERS Safety Report 8904128 (Version 1)
Quarter: 2012Q4

REPORT INFORMATION
  Report Type: 
  Country: US (occurrence: US)
  Receive Date: 20121112
  Receipt Date: 20121112
  Transmission Date: 20130627
  Serious: No
  Sender: FDA-Public Use
  Company Number: US-COVIDIEN/TYCO HEALTHCARE/MALLINCKRODT-T201203198

PATIENT
  Age: 27 Year
  Sex: Male
  Weight: 72.56 kg

DRUGS (4)
  1. FENTANYL TRANSDERMAL SYSTEM [Suspect]
     Indication: BACK PAIN
     Dosage: 25 ug/hr, Q 3 dys
     Route: 062
     Dates: start: 20120815
  2. TRAMADOL [Concomitant]
     Indication: PAIN
     Dosage: UNK
  3. ANTIINFLAMMATORY AGENTS [Concomitant]
     Dosage: UNK
  4. NORCO [Concomitant]
     Dosage: 10/325 Q2-3 hours

REACTIONS (2)
  - Cold sweat [Not Recovered/Not Resolved]
  - Drug ineffective [None]
